FAERS Safety Report 6561560-8 (Version None)
Quarter: 2010Q1

REPORT INFORMATION
  Report Type: 
  Country: None (occurrence: None)
  Receive Date: 20100130
  Receipt Date: 20091021
  Transmission Date: 20100710
  Serious: Yes (Hospitalization)
  Sender: FDA-Public Use
  Company Number: US-ABBOTT-09P-163-0604233-00

PATIENT
  Sex: Female
  Weight: 59.02 kg

DRUGS (21)
  1. HUMIRA [Suspect]
     Indication: CROHN'S DISEASE
     Route: 058
     Dates: start: 20090921
  2. HUMIRA [Suspect]
     Dates: end: 20091013
  3. DICYCLAMINE [Concomitant]
     Indication: DRUG USE FOR UNKNOWN INDICATION
  4. SOMA [Concomitant]
     Indication: DRUG USE FOR UNKNOWN INDICATION
  5. NEURONTIN [Concomitant]
     Indication: DRUG USE FOR UNKNOWN INDICATION
  6. ZOLOFT [Concomitant]
     Indication: DRUG USE FOR UNKNOWN INDICATION
  7. EVISTA [Concomitant]
     Indication: DRUG USE FOR UNKNOWN INDICATION
  8. ASACOL [Concomitant]
     Indication: DRUG USE FOR UNKNOWN INDICATION
  9. MACROZIDE [Concomitant]
     Indication: DRUG USE FOR UNKNOWN INDICATION
  10. REGLAN [Concomitant]
     Indication: DRUG USE FOR UNKNOWN INDICATION
  11. MECLIZINE [Concomitant]
     Indication: DRUG USE FOR UNKNOWN INDICATION
  12. XANAX [Concomitant]
     Indication: DRUG USE FOR UNKNOWN INDICATION
  13. AZMACORT [Concomitant]
     Indication: DRUG USE FOR UNKNOWN INDICATION
  14. RESTORIL [Concomitant]
     Indication: DRUG USE FOR UNKNOWN INDICATION
  15. OXYCONTIN [Concomitant]
     Indication: DRUG USE FOR UNKNOWN INDICATION
  16. IRON [Concomitant]
     Indication: DRUG USE FOR UNKNOWN INDICATION
  17. POTASSIUM [Concomitant]
     Indication: DRUG USE FOR UNKNOWN INDICATION
  18. CALCIUM [Concomitant]
     Indication: DRUG USE FOR UNKNOWN INDICATION
  19. CARAFATE [Concomitant]
     Indication: DRUG USE FOR UNKNOWN INDICATION
  20. ALLEGRA D 24 HOUR [Concomitant]
     Indication: DRUG USE FOR UNKNOWN INDICATION
  21. PROTONIX [Concomitant]
     Indication: DRUG USE FOR UNKNOWN INDICATION

REACTIONS (9)
  - ABASIA [None]
  - CLOSTRIDIAL INFECTION [None]
  - DEHYDRATION [None]
  - DIARRHOEA [None]
  - KIDNEY INFECTION [None]
  - MUSCLE SPASMS [None]
  - SEPSIS [None]
  - VOMITING [None]
  - WEIGHT INCREASED [None]
